FAERS Safety Report 5292033-0 (Version None)
Quarter: 2007Q2

REPORT INFORMATION
  Report Type: 
  Country: None (occurrence: None)
  Receive Date: 20070406
  Receipt Date: 20070406
  Transmission Date: 20071010
  Serious: No
  Sender: FDA-Public Use
  Company Number: None

PATIENT

DRUGS (4)
  1. ALIMTA [Suspect]
     Indication: CHONDROSARCOMA METASTATIC
     Dosage: 500 MG/M2 D1 Q 21 DAY IV
     Route: 042
     Dates: start: 20070212
  2. ALIMTA [Suspect]
     Indication: CHONDROSARCOMA METASTATIC
     Dosage: 500 MG/M2 D1 Q 21 DAY IV
     Route: 042
     Dates: start: 20070328
  3. TARCEVA [Suspect]
     Dosage: 200 MG DAYS 2-16 PO
     Route: 048
     Dates: start: 20070213, end: 20070227
  4. TARCEVA [Suspect]
     Dosage: 200 MG DAYS 2-16 PO
     Route: 048
     Dates: start: 20070309, end: 20070323

REACTIONS (11)
  - CONDITION AGGRAVATED [None]
  - COUGH [None]
  - DYSPNOEA [None]
  - HEADACHE [None]
  - HYPERGLYCAEMIA [None]
  - HYPERKALAEMIA [None]
  - HYPOCALCAEMIA [None]
  - HYPOMAGNESAEMIA [None]
  - HYPOTENSION [None]
  - NECK PAIN [None]
  - SINUS TACHYCARDIA [None]
